FAERS Safety Report 6878649-6 (Version None)
Quarter: 2010Q3

REPORT INFORMATION
  Report Type: 
  Country: None (occurrence: None)
  Receive Date: 20100728
  Receipt Date: 20100709
  Transmission Date: 20110219
  Serious: Yes (Hospitalization)
  Sender: FDA-Public Use
  Company Number: A0872383A

PATIENT
  Sex: Female

DRUGS (6)
  1. LAPATINIB [Suspect]
     Indication: BREAST CANCER
     Route: 048
     Dates: start: 20100309
  2. ACETAMINOPHEN W/ CODEINE TAB [Concomitant]
     Dates: start: 20100503
  3. METFORMIN HCL [Concomitant]
     Dates: start: 20090615, end: 20100322
  4. TAXOL [Concomitant]
     Dates: start: 20090825, end: 20100215
  5. TAMOXIFEN [Concomitant]
     Dates: start: 20090501, end: 20090727
  6. TRASTUZUMAB [Concomitant]
     Dates: start: 20090825, end: 20100215

REACTIONS (3)
  - PELVIC FRACTURE [None]
  - ROAD TRAFFIC ACCIDENT [None]
  - UPPER LIMB FRACTURE [None]
